FAERS Safety Report 10095492 (Version 1)
Quarter: 2014Q2

REPORT INFORMATION
  Report Type: Spontaneous
  Country: CH (occurrence: CH)
  Receive Date: 20140422
  Receipt Date: 20140422
  Transmission Date: 20141212
  Serious: Yes (Hospitalization)
  Sender: FDA-Public Use
  Company Number: CH-PFIZER INC-2014108508

PATIENT
  Age: 6 Year
  Sex: Male
  Weight: 19 kg

DRUGS (2)
  1. VFEND [Suspect]
     Indication: BRONCHOPULMONARY ASPERGILLOSIS
     Dosage: 200 MG, 2X/DAY
     Route: 048
     Dates: start: 201402, end: 20140311
  2. VFEND [Suspect]
     Dosage: 250 MG, 2X/DAY
     Route: 048
     Dates: start: 20140312, end: 20140403

REACTIONS (7)
  - Prescribed overdose [Unknown]
  - Weight decreased [Unknown]
  - Decreased appetite [Unknown]
  - Toxicity to various agents [Unknown]
  - Drug level above therapeutic [Unknown]
  - Vomiting [Unknown]
  - Erythema [Unknown]
